APPROVED DRUG PRODUCT: LEVOCETIRIZINE DIHYDROCHLORIDE
Active Ingredient: LEVOCETIRIZINE DIHYDROCHLORIDE
Strength: 5MG
Dosage Form/Route: TABLET;ORAL
Application: A090385 | Product #001 | TE Code: AB
Applicant: GLENMARK PHARMACEUTICALS LTD
Approved: Feb 24, 2011 | RLD: No | RS: Yes | Type: RX